FAERS Safety Report 7035455-X (Version None)
Quarter: 2010Q4

REPORT INFORMATION
  Report Type: 
  Country: None (occurrence: None)
  Receive Date: 20101008
  Receipt Date: 20100929
  Transmission Date: 20110411
  Serious: Yes (Other)
  Sender: FDA-Public Use
  Company Number: US-PFIZER INC-2010124184

PATIENT
  Sex: Male

DRUGS (3)
  1. EMCYT [Suspect]
     Indication: METASTASES TO SPINE
     Dosage: 3 SESSIONS
  2. TAXOL [Suspect]
     Indication: METASTASES TO SPINE
     Dosage: 3 SESSIONS
  3. CARBOPLATIN [Suspect]
     Indication: METASTASES TO SPINE
     Dosage: 3 SESSIONS

REACTIONS (4)
  - APHAGIA [None]
  - DYSURIA [None]
  - GLOSSODYNIA [None]
  - POLYURIA [None]
